FAERS Safety Report 7487713-2 (Version None)
Quarter: 2011Q2

REPORT INFORMATION
  Report Type: 
  Country: None (occurrence: None)
  Receive Date: 20110518
  Receipt Date: 20110505
  Transmission Date: 20111010
  Serious: Yes (Hospitalization)
  Sender: FDA-Public Use
  Company Number: PHHY2011SE38043

PATIENT
  Sex: Female

DRUGS (7)
  1. SIMVASTATIN [Concomitant]
  2. ZOMETA [Suspect]
     Indication: BREAST CANCER
     Dosage: 4 MG/5ML
  3. ZOMETA [Suspect]
     Dosage: 4 MG/5ML
     Dates: start: 20100719, end: 20100719
  4. TAXOTERE [Suspect]
     Dosage: 123 MG, UNK
     Route: 042
  5. TAXOTERE [Suspect]
     Dosage: 105 MG, UNK
     Route: 042
     Dates: start: 20100216
  6. ENALAPRIL MALEATE [Concomitant]
  7. TAXOTERE [Suspect]
     Dosage: 140 MG, UNK
     Route: 042
     Dates: start: 20100202

REACTIONS (5)
  - MUSCULOSKELETAL STIFFNESS [None]
  - PAIN [None]
  - PERIPHERAL SENSORY NEUROPATHY [None]
  - GAIT DISTURBANCE [None]
  - SPINAL OSTEOARTHRITIS [None]
